APPROVED DRUG PRODUCT: CIPROFLOXACIN HYDROCHLORIDE
Active Ingredient: CIPROFLOXACIN HYDROCHLORIDE
Strength: EQ 0.3% BASE
Dosage Form/Route: SOLUTION/DROPS;OPHTHALMIC
Application: A077568 | Product #001 | TE Code: AT
Applicant: FDC LTD
Approved: Jun 30, 2008 | RLD: No | RS: No | Type: RX